APPROVED DRUG PRODUCT: CETIRIZINE HYDROCHLORIDE AND PSEUDOEPHEDRINE HYDROCHLORIDE
Active Ingredient: CETIRIZINE HYDROCHLORIDE; PSEUDOEPHEDRINE HYDROCHLORIDE
Strength: 5MG;120MG
Dosage Form/Route: TABLET, EXTENDED RELEASE;ORAL
Application: A077991 | Product #001
Applicant: PLD ACQUISITIONS LLC DBA AVEMA PHARMA SOLUTIONS
Approved: Mar 5, 2008 | RLD: No | RS: No | Type: OTC